FAERS Safety Report 5147595-0 (Version None)
Quarter: 2006Q4

REPORT INFORMATION
  Report Type: 
  Country: None (occurrence: None)
  Receive Date: 20061106
  Receipt Date: 20061030
  Transmission Date: 20070319
  Serious: Yes (Other)
  Sender: FDA-Public Use
  Company Number: SP01013

PATIENT
  Age: 70 Year
  Sex: Female
  Weight: 52.1637 kg

DRUGS (4)
  1. VISICOL [Suspect]
     Indication: COLONOSCOPY
     Dosage: 4 TABS EVERY 15 MIN FOR 20 TABS TOTAL)
     Dates: start: 20060416, end: 20060416
  2. LOTREL [Concomitant]
  3. ATENOLOL [Concomitant]
  4. PROCARDIA [Concomitant]

REACTIONS (6)
  - ANOREXIA [None]
  - ASTHENIA [None]
  - BLOOD CREATININE INCREASED [None]
  - BLOOD UREA INCREASED [None]
  - NEPHROCALCINOSIS [None]
  - RENAL TUBULAR NECROSIS [None]
